FAERS Safety Report 10374062 (Version 2)
Quarter: 2014Q4

REPORT INFORMATION
  Report Type: Spontaneous
  Country: JP (occurrence: JP)
  Receive Date: 20140810
  Receipt Date: 20141008
  Transmission Date: 20150528
  Serious: Yes (Other)
  Sender: FDA-Public Use
  Company Number: PHHY2014JP095461

PATIENT
  Age: 26 Year
  Sex: Male

DRUGS (1)
  1. VOLTAREN [Suspect]
     Active Substance: DICLOFENAC SODIUM
     Dosage: 12.5 MG, DAILY
     Route: 054
     Dates: start: 199212, end: 199301

REACTIONS (1)
  - Oculomucocutaneous syndrome [Unknown]
